FAERS Safety Report 21435840 (Version 1)
Quarter: 2022Q4

REPORT INFORMATION
  Report Type: Spontaneous
  Country: HK (occurrence: HK)
  Receive Date: 20221010
  Receipt Date: 20221010
  Transmission Date: 20230112
  Serious: Yes (Other)
  Sender: FDA-Public Use
  Company Number: HK-VIRTUS PHARMACEUTICALS, LLC-2022VTS00029

PATIENT
  Age: 75 Year
  Sex: Female

DRUGS (4)
  1. ALBUTEROL [Suspect]
     Active Substance: ALBUTEROL
     Indication: Oxygen saturation decreased
     Route: 065
  2. PROPOFOL [Concomitant]
     Active Substance: PROPOFOL
     Indication: Sedation
     Dosage: TITRATED TO BETWEEN 1 AND 2 ?G/ML
     Route: 042
  3. REMIFENTANIL [Concomitant]
     Active Substance: REMIFENTANIL
     Indication: Sedation
     Dosage: TITRATED BETWEEN 0 TO 1 NG/ML
     Route: 042
  4. OXYGEN SUPPLEMENTATION [Concomitant]
     Route: 065

REACTIONS (1)
  - Oxygen saturation decreased [Recovered/Resolved]
